FAERS Safety Report 6046271-X (Version None)
Quarter: 2009Q1

REPORT INFORMATION
  Report Type: 
  Country: None (occurrence: None)
  Receive Date: 20090121
  Receipt Date: 20090121
  Transmission Date: 20090719
  Serious: Yes (Other)
  Sender: FDA-Public Use
  Company Number: None

PATIENT
  Age: 60 Year
  Sex: Female
  Weight: 180 kg

DRUGS (1)
  1. METRONIDAZOLE [Suspect]
     Indication: INFECTION
     Dosage: 2 PILLS EACH DAY 7 DAYS PO
     Route: 048
     Dates: start: 20080822, end: 20080909

REACTIONS (10)
  - DIARRHOEA [None]
  - DIPLOPIA [None]
  - DIZZINESS [None]
  - EPISTAXIS [None]
  - GLOSSITIS [None]
  - HEADACHE [None]
  - MUSCULOSKELETAL STIFFNESS [None]
  - ORAL HERPES [None]
  - PRURITUS [None]
  - RASH GENERALISED [None]
